FAERS Safety Report 7415078-0 (Version None)
Quarter: 2011Q2

REPORT INFORMATION
  Report Type: 
  Country: None (occurrence: None)
  Receive Date: 20110414
  Receipt Date: 20110405
  Transmission Date: 20111010
  Serious: Yes (Hospitalization, Other)
  Sender: FDA-Public Use
  Company Number: US-TEVA-273411USA

PATIENT
  Sex: Male

DRUGS (1)
  1. ALBUTEROL SULFATE AUTOHALER [Suspect]
     Route: 055
     Dates: start: 20090101

REACTIONS (4)
  - CONSTIPATION [None]
  - GASTROINTESTINAL INFECTION [None]
  - INTESTINAL PERFORATION [None]
  - BACK DISORDER [None]
